FAERS Safety Report 6360952-X (Version None)
Quarter: 2009Q3

REPORT INFORMATION
  Report Type: 
  Country: None (occurrence: None)
  Receive Date: 20090918
  Receipt Date: 20090915
  Transmission Date: 20100115
  Serious: Yes (Other)
  Sender: FDA-Public Use
  Company Number: US-BRISTOL-MYERS SQUIBB COMPANY-14779748

PATIENT
  Age: 64 Year
  Sex: Male

DRUGS (4)
  1. ERBITUX [Suspect]
     Indication: HEAD AND NECK CANCER
     Dates: start: 20090801
  2. RADIATION THERAPY [Suspect]
     Indication: HEAD AND NECK CANCER
     Dates: start: 20090801
  3. BENADRYL [Concomitant]
     Indication: PREMEDICATION
  4. ANTIHYPERTENSIVE [Concomitant]

REACTIONS (1)
  - HAEMOLYTIC ANAEMIA [None]
